FAERS Safety Report 21903436 (Version 2)
Quarter: 2023Q1

REPORT INFORMATION
  Report Type: Spontaneous
  Country: US (occurrence: US)
  Receive Date: 20230124
  Receipt Date: 20230317
  Transmission Date: 20230418
  Serious: No
  Sender: FDA-Public Use
  Company Number: US-SA-SAC20230123001237

PATIENT
  Age: 7 Year
  Sex: Female
  Weight: 28 kg

DRUGS (6)
  1. EFLORNITHINE HYDROCHLORIDE [Suspect]
     Active Substance: EFLORNITHINE HYDROCHLORIDE
     Indication: Unevaluable therapy
     Dosage: 9.8 ML, BID
     Route: 065
     Dates: start: 20191114
  2. EFLORNITHINE HYDROCHLORIDE [Suspect]
     Active Substance: EFLORNITHINE HYDROCHLORIDE
     Dosage: 1000 MG/ML, BID
     Route: 065
     Dates: start: 20221229
  3. VITAMIN C [Concomitant]
     Active Substance: ASCORBIC ACID
     Dosage: 250 MG, BID VIA GTUBE
     Route: 048
     Dates: start: 202206
  4. NORDIC NATURALS VITAMIN D3 [Concomitant]
     Dosage: 28 UG VIA GTUBE
     Route: 065
     Dates: start: 202206
  5. CLONIDINE [Concomitant]
     Active Substance: CLONIDINE
     Dosage: 0.1-0.2 MG QHS VIA GTUBE FOR SLEEP
     Route: 065
     Dates: start: 2017
  6. COD LIVER OIL [Concomitant]
     Active Substance: COD LIVER OIL
     Dosage: 1000 MG OMEGA3 VIA GTUBE
     Route: 065
     Dates: start: 202206

REACTIONS (2)
  - Rash [Recovered/Resolved]
  - Rash [Recovered/Resolved]

NARRATIVE: CASE EVENT DATE: 20221230
